FAERS Safety Report 8905764 (Version 1)
Quarter: 2012Q4

REPORT INFORMATION
  Report Type: 
  Country: US (occurrence: US)
  Receive Date: 20121113
  Receipt Date: 20121113
  Transmission Date: 20130627
  Serious: Yes (Other)
  Sender: FDA-Public Use
  Company Number: US-GLAXOSMITHKLINE-A1000119A

PATIENT
  Sex: Male

DRUGS (2)
  1. JALYN [Suspect]
     Indication: PROSTATOMEGALY
     Dosage: 1CAP Per day
     Route: 048
     Dates: start: 2009
  2. VITAMINS [Concomitant]

REACTIONS (4)
  - Urinary retention [Not Recovered/Not Resolved]
  - Cataract [Not Recovered/Not Resolved]
  - Enuresis [Not Recovered/Not Resolved]
  - Drug ineffective [Unknown]
